FAERS Safety Report 20738228 (Version 4)
Quarter: 2022Q2

REPORT INFORMATION
  Report Type: Report from Study
  Country: ES (occurrence: ES)
  Receive Date: 20220422
  Receipt Date: 20220524
  Transmission Date: 20220721
  Serious: Yes (Hospitalization, Other)
  Sender: FDA-Public Use
  Company Number: ES-JNJFOC-20220435763

PATIENT
  Age: 83 Year
  Sex: Female

DRUGS (1)
  1. IMBRUVICA [Suspect]
     Active Substance: IBRUTINIB
     Indication: Chronic lymphocytic leukaemia
     Dosage: DATE OF LAST ADMINISTRATION: 19-APR-2022?DATE OF LAST ADMINISTRATION: 05-MAY-2022
     Route: 048
     Dates: start: 20180419, end: 20220518

REACTIONS (5)
  - Cardiac failure [Not Recovered/Not Resolved]
  - Cytomegalovirus gastrointestinal infection [Recovering/Resolving]
  - Cytomegalovirus infection [Not Recovered/Not Resolved]
  - Colon neoplasm [Not Recovered/Not Resolved]
  - Treatment noncompliance [Unknown]

NARRATIVE: CASE EVENT DATE: 20220412
